FAERS Safety Report 15899171 (Version 1)
Quarter: 2019Q1

REPORT INFORMATION
  Report Type: Report from Study
  Country: US (occurrence: US)
  Receive Date: 20190201
  Receipt Date: 20190201
  Transmission Date: 20190417
  Serious: Yes (Hospitalization, Other)
  Sender: FDA-Public Use
  Company Number: US-GILEAD-2019-0388210

PATIENT
  Age: 41 Year
  Sex: Female

DRUGS (9)
  1. DIGOXIN. [Concomitant]
     Active Substance: DIGOXIN
  2. SILDENAFIL. [Concomitant]
     Active Substance: SILDENAFIL
  3. PREDNISONE. [Concomitant]
     Active Substance: PREDNISONE
  4. AMBRISENTAN [Suspect]
     Active Substance: AMBRISENTAN
     Indication: PULMONARY HYPERTENSION
     Dosage: 5 MG, QD
     Route: 048
     Dates: start: 20181206
  5. AMBRISENTAN [Suspect]
     Active Substance: AMBRISENTAN
     Indication: PULMONARY ARTERIAL HYPERTENSION
     Dosage: 10 MG, QD
     Route: 048
     Dates: start: 20181212, end: 20181218
  6. TYVASO [Concomitant]
     Active Substance: TREPROSTINIL
  7. ACTEMRA [Concomitant]
     Active Substance: TOCILIZUMAB
  8. DECADRON [Concomitant]
     Active Substance: DEXAMETHASONE
  9. PANTOPRAZOLE [Concomitant]
     Active Substance: PANTOPRAZOLE

REACTIONS (5)
  - Dyspnoea [Recovering/Resolving]
  - Petechiae [Recovering/Resolving]
  - Pulmonary congestion [Not Recovered/Not Resolved]
  - Respiratory failure [Recovering/Resolving]
  - Pleural effusion [Unknown]

NARRATIVE: CASE EVENT DATE: 20181218
